FAERS Safety Report 9688915 (Version 2)
Quarter: 2014Q1

REPORT INFORMATION
  Report Type: Report from Study
  Country: FR (occurrence: FR)
  Receive Date: 20131114
  Receipt Date: 20140124
  Transmission Date: 20141002
  Serious: Yes (Hospitalization)
  Sender: FDA-Public Use
  Company Number: PHHY2013FR129765

PATIENT
  Sex: 0

DRUGS (5)
  1. TASIGNA [Suspect]
     Indication: CHRONIC MYELOID LEUKAEMIA
     Dosage: 300 MG, BID
     Route: 048
     Dates: start: 20121120
  2. CRESTOR [Concomitant]
     Dates: start: 200810
  3. DIAMICRON [Concomitant]
     Dates: start: 200810
  4. AMLOR [Concomitant]
     Dates: start: 200810
  5. ODRIK [Concomitant]
     Dates: start: 200810

REACTIONS (1)
  - Musculoskeletal pain [Recovered/Resolved]
